FAERS Safety Report 11392858 (Version 2)
Quarter: 2015Q3

REPORT INFORMATION
  Report Type: Spontaneous
  Country: FR (occurrence: FR)
  Receive Date: 20150818
  Receipt Date: 20150910
  Transmission Date: 20151125
  Serious: Yes (Death, Hospitalization)
  Sender: FDA-Public Use
  Company Number: FR-DSJP-DSE-2015-125317

PATIENT

DRUGS (1)
  1. ALTEISDUO [Suspect]
     Active Substance: HYDROCHLOROTHIAZIDE\OLMESARTAN MEDOXOMIL
     Indication: HYPERTENSION
     Dosage: UNK
     Route: 048

REACTIONS (13)
  - Gastrointestinal disorder [Unknown]
  - Malabsorption [Fatal]
  - Cardiopulmonary failure [Fatal]
  - Prerenal failure [Unknown]
  - Streptococcal infection [Unknown]
  - Hypotension [Recovering/Resolving]
  - Cardiogenic shock [Fatal]
  - Metabolic acidosis [Unknown]
  - Diarrhoea [Unknown]
  - Dehydration [Fatal]
  - Dyspnoea [Unknown]
  - Bursitis [Unknown]
  - Asthenia [Unknown]

NARRATIVE: CASE EVENT DATE: 201507
